FAERS Safety Report 4362512-9 (Version None)
Quarter: 2004Q2

REPORT INFORMATION
  Report Type: 
  Country: None (occurrence: None)
  Receive Date: 20040521
  Receipt Date: 20040512
  Transmission Date: 20050107
  Serious: Yes (Other)
  Sender: FDA-Public Use
  Company Number: FR-BRISTOL-MYERS SQUIBB COMPANY-12586251

PATIENT
  Age: 53 Year
  Sex: Female

DRUGS (1)
  1. ELISOR TABS 20 MG [Suspect]
     Route: 048
     Dates: end: 20040301

REACTIONS (2)
  - MUSCLE HAEMORRHAGE [None]
  - MYALGIA [None]
